FAERS Safety Report 8383367-1 (Version None)
Quarter: 2012Q2

REPORT INFORMATION
  Report Type: 
  Country: None (occurrence: None)
  Receive Date: 20120522
  Receipt Date: 20120507
  Transmission Date: 20120825
  Serious: Yes (Other)
  Sender: FDA-Public Use
  Company Number: 2012050050

PATIENT
  Sex: Male

DRUGS (3)
  1. MUSE [Suspect]
     Indication: ERECTILE DYSFUNCTION
     Dosage: (500 MCG,AS REQUIRED),URETHRAL ; (1000 AS REQUIRED),URETHRAL
     Route: 066
     Dates: start: 20090101, end: 20090101
  2. MUSE [Suspect]
     Indication: ERECTILE DYSFUNCTION
     Dosage: (500 MCG,AS REQUIRED),URETHRAL ; (1000 AS REQUIRED),URETHRAL
     Route: 066
     Dates: start: 20100101
  3. FLOMAX [Concomitant]

REACTIONS (3)
  - DRUG INEFFECTIVE [None]
  - WRONG TECHNIQUE IN DRUG USAGE PROCESS [None]
  - TYPE 2 DIABETES MELLITUS [None]
